FAERS Safety Report 8493321-7 (Version None)
Quarter: 2012Q2

REPORT INFORMATION
  Report Type: 
  Country: None (occurrence: None)
  Receive Date: 20120628
  Receipt Date: 20120612
  Transmission Date: 20120825
  Serious: Yes (Hospitalization)
  Sender: FDA-Public Use
  Company Number: THQ2009A03070

PATIENT
  Age: 36 Year
  Sex: Female

DRUGS (18)
  1. ATORVASTATIN [Concomitant]
  2. FUROSEMIDE [Concomitant]
  3. RAMIPRIL [Concomitant]
  4. CLOZARIL [Suspect]
     Indication: SCHIZOPHRENIA
     Dosage: 250 MG (250 MG, 1 IN 1 D)
     Route: 048
     Dates: start: 20060605, end: 20060713
  5. CLOZARIL [Suspect]
     Indication: SCHIZOPHRENIA
     Dosage: 250 MG (250 MG, 1 IN 1 D)
     Route: 048
     Dates: start: 20080519, end: 20080519
  6. CLOZARIL [Suspect]
     Indication: SCHIZOPHRENIA
     Dosage: 250 MG (250 MG, 1 IN 1 D)
     Route: 048
     Dates: start: 20080519
  7. CLOZARIL [Suspect]
     Indication: SCHIZOPHRENIA
     Dosage: 250 MG (250 MG, 1 IN 1 D)
     Route: 048
     Dates: start: 20080605
  8. ZOPICLONE [Concomitant]
  9. ARIPIPRAZOLE [Concomitant]
  10. FOLIC ACID [Suspect]
     Indication: PRODUCT USED FOR UNKNOWN INDICATION
     Dosage: 5 MG (5 MG, 1 IN 1 D)
     Route: 048
  11. PERINDOPRIL ERBUMINE [Suspect]
     Indication: PRODUCT USED FOR UNKNOWN INDICATION
     Dosage: 2 MG (2 MG, 1 IN 1 D)
     Route: 048
  12. LACTULOSE [Suspect]
     Indication: PRODUCT USED FOR UNKNOWN INDICATION
     Dosage: 10 ML, AS REQUIRED
  13. LANSOPRAZOLE [Suspect]
     Indication: PRODUCT USED FOR UNKNOWN INDICATION
     Dosage: 30 MG (30 MG, 1 IN 1 D)
     Route: 048
  14. BENDROFLUAZIDE (BENDROFLUMETHIAZIDE) [Concomitant]
  15. FERROUS SULFATE TAB [Suspect]
     Indication: PRODUCT USED FOR UNKNOWN INDICATION
     Dosage: 400 MG (200 MG, 2 IN 1 D)
     Route: 048
  16. DIAZEPAM [Suspect]
     Indication: PRODUCT USED FOR UNKNOWN INDICATION
     Dosage: AS REQUIRED
  17. TRIMETHOPRIM [Suspect]
     Indication: URINARY TRACT INFECTION
  18. ABILIFY (APIPRAZOLE) [Concomitant]

REACTIONS (26)
  - WHITE BLOOD CELL COUNT INCREASED [None]
  - ABDOMINAL TENDERNESS [None]
  - STAPHYLOCOCCAL INFECTION [None]
  - HYPERTENSION [None]
  - STAPHYLOCOCCUS TEST POSITIVE [None]
  - IRON DEFICIENCY ANAEMIA [None]
  - NEUTROPHIL COUNT INCREASED [None]
  - WHITE BLOOD CELL DISORDER [None]
  - LABORATORY TEST INTERFERENCE [None]
  - BODY MASS INDEX DECREASED [None]
  - MEAN CELL VOLUME DECREASED [None]
  - TREATMENT NONCOMPLIANCE [None]
  - DRUG INEFFECTIVE [None]
  - DIABETES MELLITUS [None]
  - SINUS TACHYCARDIA [None]
  - THROMBOCYTOSIS [None]
  - HIATUS HERNIA [None]
  - MONOCYTE COUNT INCREASED [None]
  - URINARY TRACT INFECTION [None]
  - CARDIAC MURMUR [None]
  - PYREXIA [None]
  - SKIN DISORDER [None]
  - PHYSICAL ASSAULT [None]
  - CONSTIPATION [None]
  - MALAISE [None]
  - BLOOD DISORDER [None]
